FAERS Safety Report 26106375 (Version 2)
Quarter: 2025Q4

REPORT INFORMATION
  Report Type: Spontaneous
  Country: EU (occurrence: EU)
  Receive Date: 20251201
  Receipt Date: 20251208
  Transmission Date: 20260118
  Serious: Yes (Hospitalization, Other)
  Sender: AUROBINDO
  Company Number: EU-BAXTER-2025BAX024153

PATIENT
  Sex: Male

DRUGS (114)
  1. MAGNESIUM SULFATE [Suspect]
     Active Substance: MAGNESIUM SULFATE
     Indication: Product used for unknown indication
     Dosage: 3.2 MILLILITER
     Route: 065
  2. MAGNESIUM SULFATE [Suspect]
     Active Substance: MAGNESIUM SULFATE
     Dosage: 3.2 MILLILITER
     Route: 065
  3. MAGNESIUM SULFATE [Suspect]
     Active Substance: MAGNESIUM SULFATE
     Dosage: 3.2 MILLILITER
     Route: 065
  4. MAGNESIUM SULFATE [Suspect]
     Active Substance: MAGNESIUM SULFATE
     Dosage: 3.2 MILLILITER
     Route: 065
  5. MAGNESIUM SULFATE [Suspect]
     Active Substance: MAGNESIUM SULFATE
     Dosage: 3.2 MILLILITER
     Route: 065
  6. MAGNESIUM SULFATE [Suspect]
     Active Substance: MAGNESIUM SULFATE
     Dosage: 3.2 MILLILITER
     Route: 065
  7. MAGNESIUM SULFATE [Suspect]
     Active Substance: MAGNESIUM SULFATE
     Dosage: 3.2 MILLILITER
     Route: 065
  8. MAGNESIUM SULFATE [Suspect]
     Active Substance: MAGNESIUM SULFATE
     Dosage: 3.2 MILLILITER
     Route: 065
  9. MAGNESIUM SULFATE [Suspect]
     Active Substance: MAGNESIUM SULFATE
     Dosage: 3.2 MILLILITER
     Route: 065
  10. AMINO ACIDS, SOURCE UNSPECIFIED [Suspect]
     Active Substance: AMINO ACIDS, SOURCE UNSPECIFIED
     Indication: Parenteral nutrition
     Dosage: 252 MILLILITER
     Route: 065
  11. AMINO ACIDS, SOURCE UNSPECIFIED [Suspect]
     Active Substance: AMINO ACIDS, SOURCE UNSPECIFIED
     Dosage: 252 MILLILITER
     Route: 065
  12. AMINO ACIDS, SOURCE UNSPECIFIED [Suspect]
     Active Substance: AMINO ACIDS, SOURCE UNSPECIFIED
     Dosage: 252 MILLILITER
     Route: 065
  13. AMINO ACIDS, SOURCE UNSPECIFIED [Suspect]
     Active Substance: AMINO ACIDS, SOURCE UNSPECIFIED
     Dosage: 252 MILLILITER
     Route: 065
  14. AMINO ACIDS, SOURCE UNSPECIFIED [Suspect]
     Active Substance: AMINO ACIDS, SOURCE UNSPECIFIED
     Dosage: 252 MILLILITER
     Route: 065
  15. AMINO ACIDS, SOURCE UNSPECIFIED [Suspect]
     Active Substance: AMINO ACIDS, SOURCE UNSPECIFIED
     Dosage: 252 MILLILITER
     Route: 065
  16. AMINO ACIDS, SOURCE UNSPECIFIED [Suspect]
     Active Substance: AMINO ACIDS, SOURCE UNSPECIFIED
     Dosage: 252 MILLILITER
     Route: 065
  17. AMINO ACIDS, SOURCE UNSPECIFIED [Suspect]
     Active Substance: AMINO ACIDS, SOURCE UNSPECIFIED
     Dosage: 252 MILLILITER
     Route: 065
  18. AMINO ACIDS, SOURCE UNSPECIFIED [Suspect]
     Active Substance: AMINO ACIDS, SOURCE UNSPECIFIED
     Dosage: 252 MILLILITER
     Route: 065
  19. OLIVE OIL\SOYBEAN OIL, REFINED [Suspect]
     Active Substance: OLIVE OIL\SOYBEAN OIL
     Indication: Parenteral nutrition
     Dosage: 172 MILLIGRAM
     Route: 065
  20. OLIVE OIL\SOYBEAN OIL, REFINED [Suspect]
     Active Substance: OLIVE OIL\SOYBEAN OIL
     Dosage: 172 MILLIGRAM
     Route: 065
  21. OLIVE OIL\SOYBEAN OIL, REFINED [Suspect]
     Active Substance: OLIVE OIL\SOYBEAN OIL
     Dosage: 172 MILLIGRAM
     Route: 065
  22. OLIVE OIL\SOYBEAN OIL, REFINED [Suspect]
     Active Substance: OLIVE OIL\SOYBEAN OIL
     Dosage: 172 MILLIGRAM
     Route: 065
  23. OLIVE OIL\SOYBEAN OIL, REFINED [Suspect]
     Active Substance: OLIVE OIL\SOYBEAN OIL
     Dosage: 172 MILLIGRAM
     Route: 065
  24. OLIVE OIL\SOYBEAN OIL, REFINED [Suspect]
     Active Substance: OLIVE OIL\SOYBEAN OIL
     Dosage: 172 MILLIGRAM
     Route: 065
  25. OLIVE OIL\SOYBEAN OIL, REFINED [Suspect]
     Active Substance: OLIVE OIL\SOYBEAN OIL
     Dosage: 172 MILLIGRAM
     Route: 065
  26. OLIVE OIL\SOYBEAN OIL, REFINED [Suspect]
     Active Substance: OLIVE OIL\SOYBEAN OIL
     Dosage: 172 MILLIGRAM
     Route: 065
  27. OLIVE OIL\SOYBEAN OIL, REFINED [Suspect]
     Active Substance: OLIVE OIL\SOYBEAN OIL
     Dosage: 172 MILLIGRAM
     Route: 065
  28. CERNEVIT [Suspect]
     Active Substance: VITAMINS
     Indication: Parenteral nutrition
     Dosage: 7.6 MILLILITER
     Route: 065
  29. CERNEVIT [Suspect]
     Active Substance: VITAMINS
     Dosage: 7.6 MILLILITER
     Route: 065
  30. CERNEVIT [Suspect]
     Active Substance: VITAMINS
     Dosage: 7.6 MILLILITER
     Route: 065
  31. CERNEVIT [Suspect]
     Active Substance: VITAMINS
     Dosage: 7.6 MILLILITER
     Route: 065
  32. CERNEVIT [Suspect]
     Active Substance: VITAMINS
     Dosage: 7.6 MILLILITER
     Route: 065
  33. CERNEVIT [Suspect]
     Active Substance: VITAMINS
     Dosage: 7.6 MILLILITER
     Route: 065
  34. CERNEVIT [Suspect]
     Active Substance: VITAMINS
     Dosage: 7.6 MILLILITER
     Route: 065
  35. CERNEVIT [Suspect]
     Active Substance: VITAMINS
     Dosage: 7.6 MILLILITER
     Route: 065
  36. CERNEVIT [Suspect]
     Active Substance: VITAMINS
     Dosage: 7.6 MILLILITER
     Route: 065
  37. DEXTROSE [Suspect]
     Active Substance: DEXTROSE MONOHYDRATE
     Indication: Parenteral nutrition
     Dosage: 323 MILLILITER
     Route: 065
  38. DEXTROSE [Suspect]
     Active Substance: DEXTROSE MONOHYDRATE
     Dosage: 323 MILLILITER
     Route: 065
  39. DEXTROSE [Suspect]
     Active Substance: DEXTROSE MONOHYDRATE
     Dosage: 323 MILLILITER
     Route: 065
  40. DEXTROSE [Suspect]
     Active Substance: DEXTROSE MONOHYDRATE
     Dosage: 323 MILLILITER
     Route: 065
  41. DEXTROSE [Suspect]
     Active Substance: DEXTROSE MONOHYDRATE
     Dosage: 323 MILLILITER
     Route: 065
  42. DEXTROSE [Suspect]
     Active Substance: DEXTROSE MONOHYDRATE
     Dosage: 323 MILLILITER
     Route: 065
  43. DEXTROSE [Suspect]
     Active Substance: DEXTROSE MONOHYDRATE
     Dosage: 323 MILLILITER
     Route: 065
  44. DEXTROSE [Suspect]
     Active Substance: DEXTROSE MONOHYDRATE
     Dosage: 323 MILLILITER
     Route: 065
  45. DEXTROSE [Suspect]
     Active Substance: DEXTROSE MONOHYDRATE
     Dosage: 323 MILLILITER
     Route: 065
  46. CALCIUM GLUCONATE [Suspect]
     Active Substance: CALCIUM GLUCONATE
     Indication: Parenteral nutrition
     Dosage: 92 MILLILITER
     Route: 065
  47. CALCIUM GLUCONATE [Suspect]
     Active Substance: CALCIUM GLUCONATE
     Dosage: 92 MILLILITER
     Route: 065
  48. CALCIUM GLUCONATE [Suspect]
     Active Substance: CALCIUM GLUCONATE
     Dosage: 92 MILLILITER
     Route: 065
  49. CALCIUM GLUCONATE [Suspect]
     Active Substance: CALCIUM GLUCONATE
     Dosage: 92 MILLILITER
     Route: 065
  50. CALCIUM GLUCONATE [Suspect]
     Active Substance: CALCIUM GLUCONATE
     Dosage: 92 MILLILITER
     Route: 065
  51. CALCIUM GLUCONATE [Suspect]
     Active Substance: CALCIUM GLUCONATE
     Dosage: 92 MILLILITER
     Route: 065
  52. CALCIUM GLUCONATE [Suspect]
     Active Substance: CALCIUM GLUCONATE
     Dosage: 92 MILLILITER
     Route: 065
  53. CALCIUM GLUCONATE [Suspect]
     Active Substance: CALCIUM GLUCONATE
     Dosage: 92 MILLILITER
     Route: 065
  54. CALCIUM GLUCONATE [Suspect]
     Active Substance: CALCIUM GLUCONATE
     Dosage: 92 MILLILITER
     Route: 065
  55. KCL [Suspect]
     Active Substance: POTASSIUM CHLORIDE
     Indication: Parenteral nutrition
     Dosage: 116 ML
     Route: 065
  56. KCL [Suspect]
     Active Substance: POTASSIUM CHLORIDE
     Dosage: 116 MILLILITER
     Route: 065
  57. KCL [Suspect]
     Active Substance: POTASSIUM CHLORIDE
     Dosage: 116 MILLILITER
     Route: 065
  58. KCL [Suspect]
     Active Substance: POTASSIUM CHLORIDE
     Dosage: 116 MILLILITER
     Route: 065
  59. KCL [Suspect]
     Active Substance: POTASSIUM CHLORIDE
     Dosage: 116 MILLILITER
     Route: 065
  60. KCL [Suspect]
     Active Substance: POTASSIUM CHLORIDE
     Dosage: 116 MILLILITER
     Route: 065
  61. KCL [Suspect]
     Active Substance: POTASSIUM CHLORIDE
     Dosage: 116 MILLILITER
     Route: 065
  62. KCL [Suspect]
     Active Substance: POTASSIUM CHLORIDE
     Dosage: 116 MILLILITER
     Route: 065
  63. KCL [Suspect]
     Active Substance: POTASSIUM CHLORIDE
     Dosage: 116 MILLILITER
     Route: 065
  64. SODIUM CHLORIDE [Suspect]
     Active Substance: SODIUM CHLORIDE
     Indication: Parenteral nutrition
     Dosage: 11 MILLILITER
     Route: 065
  65. SODIUM CHLORIDE [Suspect]
     Active Substance: SODIUM CHLORIDE
     Dosage: 11 MILLILITER
     Route: 065
  66. SODIUM CHLORIDE [Suspect]
     Active Substance: SODIUM CHLORIDE
     Dosage: 11 MILLILITER
     Route: 065
  67. SODIUM CHLORIDE [Suspect]
     Active Substance: SODIUM CHLORIDE
     Dosage: 11 MILLILITER
     Route: 065
  68. SODIUM CHLORIDE [Suspect]
     Active Substance: SODIUM CHLORIDE
     Dosage: 11 MILLILITER
     Route: 065
  69. SODIUM CHLORIDE [Suspect]
     Active Substance: SODIUM CHLORIDE
     Dosage: 11 MILLILITER
     Route: 065
  70. SODIUM CHLORIDE [Suspect]
     Active Substance: SODIUM CHLORIDE
     Dosage: 11 MILLILITER
     Route: 065
  71. SODIUM CHLORIDE [Suspect]
     Active Substance: SODIUM CHLORIDE
     Dosage: 11 MILLILITER
     Route: 065
  72. SODIUM CHLORIDE [Suspect]
     Active Substance: SODIUM CHLORIDE
     Dosage: 11 MILLILITER
     Route: 065
  73. PHOCYTAN [Suspect]
     Active Substance: .ALPHA.-GLUCOSE-1-PHOSPHATE DISODIUM TETRAHYDRATE
     Indication: Parenteral nutrition
     Dosage: 98 MILLILITER
     Route: 065
  74. PHOCYTAN [Suspect]
     Active Substance: .ALPHA.-GLUCOSE-1-PHOSPHATE DISODIUM TETRAHYDRATE
     Dosage: 98 MILLILITER
     Route: 065
  75. PHOCYTAN [Suspect]
     Active Substance: .ALPHA.-GLUCOSE-1-PHOSPHATE DISODIUM TETRAHYDRATE
     Dosage: 98 MILLILITER
     Route: 065
  76. PHOCYTAN [Suspect]
     Active Substance: .ALPHA.-GLUCOSE-1-PHOSPHATE DISODIUM TETRAHYDRATE
     Dosage: 98 MILLILITER
     Route: 065
  77. PHOCYTAN [Suspect]
     Active Substance: .ALPHA.-GLUCOSE-1-PHOSPHATE DISODIUM TETRAHYDRATE
     Dosage: 98 MILLILITER
     Route: 065
  78. PHOCYTAN [Suspect]
     Active Substance: .ALPHA.-GLUCOSE-1-PHOSPHATE DISODIUM TETRAHYDRATE
     Dosage: 98 MILLILITER
     Route: 065
  79. PHOCYTAN [Suspect]
     Active Substance: .ALPHA.-GLUCOSE-1-PHOSPHATE DISODIUM TETRAHYDRATE
     Dosage: 98 MILLILITER
     Route: 065
  80. PHOCYTAN [Suspect]
     Active Substance: .ALPHA.-GLUCOSE-1-PHOSPHATE DISODIUM TETRAHYDRATE
     Dosage: 98 MILLILITER
     Route: 065
  81. PHOCYTAN [Suspect]
     Active Substance: .ALPHA.-GLUCOSE-1-PHOSPHATE DISODIUM TETRAHYDRATE
     Dosage: 98 MILLILITER
     Route: 065
  82. UNSPECIFIED INGREDIENT [Suspect]
     Active Substance: UNSPECIFIED INGREDIENT
     Indication: Parenteral nutrition
     Dosage: 11 MILLILITER
     Route: 065
  83. UNSPECIFIED INGREDIENT [Suspect]
     Active Substance: UNSPECIFIED INGREDIENT
     Dosage: 11 MILLILITER
     Route: 065
  84. UNSPECIFIED INGREDIENT [Suspect]
     Active Substance: UNSPECIFIED INGREDIENT
     Dosage: 11 MILLILITER
     Route: 065
  85. UNSPECIFIED INGREDIENT [Suspect]
     Active Substance: UNSPECIFIED INGREDIENT
     Dosage: 11 MILLILITER
     Route: 065
  86. UNSPECIFIED INGREDIENT [Suspect]
     Active Substance: UNSPECIFIED INGREDIENT
     Dosage: 11 MILLILITER
     Route: 065
  87. UNSPECIFIED INGREDIENT [Suspect]
     Active Substance: UNSPECIFIED INGREDIENT
     Dosage: 11 MILLILITER
     Route: 065
  88. UNSPECIFIED INGREDIENT [Suspect]
     Active Substance: UNSPECIFIED INGREDIENT
     Dosage: 11 MILLILITER
     Route: 065
  89. UNSPECIFIED INGREDIENT [Suspect]
     Active Substance: UNSPECIFIED INGREDIENT
     Dosage: 11 MILLILITER
     Route: 065
  90. UNSPECIFIED INGREDIENT [Suspect]
     Active Substance: UNSPECIFIED INGREDIENT
     Dosage: 11 MILLILITER
     Route: 065
  91. IRON\MINERALS\POTASSIUM IOD\SODIUM FLUORIDE\SODIUM MOLYBDATE\SODIUM SE [Suspect]
     Active Substance: IRON\MINERALS\POTASSIUM IOD\SODIUM FLUORIDE\SODIUM MOLYBDATE\SODIUM SELENITE\ZINC
     Indication: Parenteral nutrition
     Dosage: 11 MILLILITER
     Route: 065
  92. IRON\MINERALS\POTASSIUM IOD\SODIUM FLUORIDE\SODIUM MOLYBDATE\SODIUM SE [Suspect]
     Active Substance: IRON\MINERALS\POTASSIUM IOD\SODIUM FLUORIDE\SODIUM MOLYBDATE\SODIUM SELENITE\ZINC
     Dosage: 11 MILLILITER
     Route: 065
  93. IRON\MINERALS\POTASSIUM IOD\SODIUM FLUORIDE\SODIUM MOLYBDATE\SODIUM SE [Suspect]
     Active Substance: IRON\MINERALS\POTASSIUM IOD\SODIUM FLUORIDE\SODIUM MOLYBDATE\SODIUM SELENITE\ZINC
     Dosage: 11 MILLILITER
     Route: 065
  94. IRON\MINERALS\POTASSIUM IOD\SODIUM FLUORIDE\SODIUM MOLYBDATE\SODIUM SE [Suspect]
     Active Substance: IRON\MINERALS\POTASSIUM IOD\SODIUM FLUORIDE\SODIUM MOLYBDATE\SODIUM SELENITE\ZINC
     Dosage: 11 MILLILITER
     Route: 065
  95. OMEGAVEN [Suspect]
     Active Substance: FISH OIL
     Indication: Parenteral nutrition
     Dosage: 129 MILLIGRAM
     Route: 065
  96. OMEGAVEN [Suspect]
     Active Substance: FISH OIL
     Dosage: 129 MILLIGRAM
     Route: 065
  97. OMEGAVEN [Suspect]
     Active Substance: FISH OIL
     Dosage: 129 MILLIGRAM
     Route: 065
  98. OMEGAVEN [Suspect]
     Active Substance: FISH OIL
     Dosage: 129 MILLIGRAM
     Route: 065
  99. OMEGAVEN [Suspect]
     Active Substance: FISH OIL
     Dosage: 129 MILLIGRAM
     Route: 065
  100. OMEGAVEN [Suspect]
     Active Substance: FISH OIL
     Dosage: 129 MILLIGRAM
     Route: 065
  101. OMEGAVEN [Suspect]
     Active Substance: FISH OIL
     Dosage: 129 MILLIGRAM
     Route: 065
  102. OMEGAVEN [Suspect]
     Active Substance: FISH OIL
     Dosage: 129 MILLIGRAM
     Route: 065
  103. OMEGAVEN [Suspect]
     Active Substance: FISH OIL
     Dosage: 129 MILLIGRAM
     Route: 065
  104. VITAMIN K [Suspect]
     Active Substance: PHYTONADIONE
     Indication: Parenteral nutrition
     Dosage: 1.1 MILLILITER
     Route: 065
  105. VITAMIN K [Suspect]
     Active Substance: PHYTONADIONE
     Dosage: 1.1 MILLILITER
     Route: 065
  106. FAMOTIDINE [Suspect]
     Active Substance: FAMOTIDINE
     Indication: Parenteral nutrition
     Dosage: 5.4 MILLILITER
     Route: 065
  107. FAMOTIDINE [Suspect]
     Active Substance: FAMOTIDINE
     Dosage: 5.4 MILLILITER
     Route: 065
  108. FAMOTIDINE [Suspect]
     Active Substance: FAMOTIDINE
     Dosage: 5.4 MILLILITER
     Route: 065
  109. FAMOTIDINE [Suspect]
     Active Substance: FAMOTIDINE
     Dosage: 5.4 MILLILITER
     Route: 065
  110. FAMOTIDINE [Suspect]
     Active Substance: FAMOTIDINE
     Dosage: 5.4 MILLILITER
     Route: 065
  111. FAMOTIDINE [Suspect]
     Active Substance: FAMOTIDINE
     Dosage: 5.4 MILLILITER
     Route: 065
  112. FAMOTIDINE [Suspect]
     Active Substance: FAMOTIDINE
     Dosage: 5.4 MILLILITER
     Route: 065
  113. FAMOTIDINE [Suspect]
     Active Substance: FAMOTIDINE
     Dosage: 5.4 MILLILITER
     Route: 065
  114. FAMOTIDINE [Suspect]
     Active Substance: FAMOTIDINE
     Dosage: 5.4 MILLILITER
     Route: 065

REACTIONS (1)
  - Sepsis [Unknown]
